FAERS Safety Report 5452299-0 (Version None)
Quarter: 2007Q3

REPORT INFORMATION
  Report Type: 
  Country: None (occurrence: None)
  Receive Date: 20070912
  Receipt Date: 20070912
  Transmission Date: 20080115
  Serious: No
  Sender: FDA-Public Use
  Company Number: None

PATIENT
  Age: 30 Year
  Sex: Female
  Weight: 61.2356 kg

DRUGS (1)
  1. TERBUTALINE SULFATE [Suspect]
     Indication: PREMATURE LABOUR
     Dosage: IV INJECTION TWICE
     Route: 042
     Dates: start: 20070908, end: 20070910

REACTIONS (2)
  - DRUG EXPOSURE DURING PREGNANCY [None]
  - HEART RATE INCREASED [None]
